FAERS Safety Report 20690234 (Version 2)
Quarter: 2022Q2

REPORT INFORMATION
  Report Type: Spontaneous
  Country: AU (occurrence: AU)
  Receive Date: 20220408
  Receipt Date: 20220620
  Transmission Date: 20220720
  Serious: Yes (Other)
  Sender: FDA-Public Use
  Company Number: AU-NOVARTISPH-NVSC2022AU052408

PATIENT
  Sex: Male
  Weight: 11.5 kg

DRUGS (2)
  1. TACROLIMUS [Suspect]
     Active Substance: TACROLIMUS
     Indication: Acute graft versus host disease
     Dosage: 2.5 MG, BID
     Route: 065
  2. METHYLPREDNISOLONE [Suspect]
     Active Substance: METHYLPREDNISOLONE
     Indication: Acute graft versus host disease
     Dosage: 2 MG/KG, QD
     Route: 042

REACTIONS (4)
  - Acute graft versus host disease in skin [Recovering/Resolving]
  - Acute graft versus host disease in liver [Recovering/Resolving]
  - Acute graft versus host disease in intestine [Recovering/Resolving]
  - Product use in unapproved indication [Unknown]
